FAERS Safety Report 9886242 (Version 1)
Quarter: 2014Q1

REPORT INFORMATION
  Report Type: Report from Study
  Country: JP (occurrence: JP)
  Receive Date: 20140210
  Receipt Date: 20140210
  Transmission Date: 20141002
  Serious: Yes (Hospitalization)
  Sender: FDA-Public Use
  Company Number: JP-B.I. PHARMACEUTICALS,INC./RIDGEFIELD-2014-BI-05349NB

PATIENT
  Age: 60 Year
  Sex: Female
  Weight: 49 kg

DRUGS (5)
  1. MIRAPEX LA [Suspect]
     Indication: PARKINSON^S DISEASE
     Dosage: 0.75 MG
     Route: 048
     Dates: start: 20120927, end: 20121121
  2. MIRAPEX LA [Suspect]
     Indication: PARKINSON^S DISEASE
     Dosage: 1.5 MG
     Route: 048
     Dates: start: 20121122, end: 20130905
  3. MIRAPEX LA [Suspect]
     Indication: PARKINSON^S DISEASE
     Dosage: 0.75 MG
     Route: 048
     Dates: start: 20130906, end: 20130910
  4. NEODOPASTON [Suspect]
     Indication: PARKINSON^S DISEASE
     Dosage: 2DF
     Route: 048
     Dates: end: 20130918
  5. NEODOPASTON [Suspect]
     Indication: PARKINSON^S DISEASE
     Dosage: 1DF
     Route: 048
     Dates: start: 20130919

REACTIONS (3)
  - Hallucination [Recovered/Resolved]
  - Delusion [Recovered/Resolved]
  - Confusional state [Recovered/Resolved]
